FAERS Safety Report 8068085-1 (Version None)
Quarter: 2012Q1

REPORT INFORMATION
  Report Type: 
  Country: None (occurrence: None)
  Receive Date: 20120124
  Receipt Date: 20110922
  Transmission Date: 20120608
  Serious: No
  Sender: FDA-Public Use
  Company Number: US-AMGEN-USASP2011049036

PATIENT
  Age: 81 Year
  Sex: Female

DRUGS (6)
  1. MELOXICAM [Concomitant]
     Dosage: UNK
  2. MULTIVITAMIN                       /00097801/ [Concomitant]
     Dosage: UNK
  3. LEVOXYL [Concomitant]
     Dosage: 1 MUG, QD
  4. DIOVAN [Concomitant]
     Dosage: 1 MG, Q6MO
  5. VITAMIN D [Concomitant]
     Dosage: UNK
  6. PROLIA [Suspect]
     Indication: OSTEOPOROSIS POSTMENOPAUSAL
     Dosage: 60 MG, Q6MO
     Dates: start: 20110101

REACTIONS (3)
  - FOOT FRACTURE [None]
  - GAIT DISTURBANCE [None]
  - OEDEMA PERIPHERAL [None]
